FAERS Safety Report 5466380-3 (Version None)
Quarter: 2007Q3

REPORT INFORMATION
  Report Type: 
  Country: None (occurrence: None)
  Receive Date: 20070920
  Receipt Date: 20070917
  Transmission Date: 20080115
  Serious: Yes (Other)
  Sender: FDA-Public Use
  Company Number: 2007331048

PATIENT
  Sex: Male

DRUGS (1)
  1. PURELL           (ETHYL ALCOHOL) UNSPECIFIED [Suspect]
     Dosage: TOPICAL
     Route: 061

REACTIONS (1)
  - INFERTILITY MALE [None]
